FAERS Safety Report 26000416 (Version 1)
Quarter: 2025Q4

REPORT INFORMATION
  Report Type: Spontaneous
  Country: US (occurrence: US)
  Receive Date: 20251105
  Receipt Date: 20251105
  Transmission Date: 20260119
  Serious: No
  Sender: ANI
  Company Number: US-ANIPHARMA-2025-US-037484

PATIENT
  Age: 50 Year
  Sex: Female

DRUGS (18)
  1. CORTICOTROPIN [Suspect]
     Active Substance: CORTICOTROPIN
     Indication: Ankylosing spondylitis
     Dosage: INJECT 40 UNITS (0.5ML) SUBCUTANEOUSLY THREE TIMES PER WEEK
     Route: 058
  2. CINQAIR [Concomitant]
     Active Substance: RESLIZUMAB
  3. TRAMADOL HCL [Concomitant]
     Active Substance: TRAMADOL HYDROCHLORIDE
  4. ZOFRAN [Concomitant]
     Active Substance: ONDANSETRON HYDROCHLORIDE
  5. COMPAZINE [Concomitant]
     Active Substance: PROCHLORPERAZINE MALEATE
  6. STIOLTO RESPIMAT STIOLTO [Concomitant]
  7. LIDOCAINE [Concomitant]
     Active Substance: LIDOCAINE
  8. ARNUITY ELLIPTA [Concomitant]
     Active Substance: FLUTICASONE FUROATE
  9. CIMZIA [Concomitant]
     Active Substance: CERTOLIZUMAB PEGOL
  10. BELBUCA [Concomitant]
     Active Substance: BUPRENORPHINE HYDROCHLORIDE
  11. ONDANSETRON HYDROCHLORIDE [Concomitant]
     Active Substance: ONDANSETRON HYDROCHLORIDE
  12. VITAMIN D [Concomitant]
     Active Substance: VITAMIN D NOS
  13. FAMOTIDINE [Concomitant]
     Active Substance: FAMOTIDINE
  14. VITAMIN B12 [Concomitant]
     Active Substance: CYANOCOBALAMIN
  15. BACLOFEN [Concomitant]
     Active Substance: BACLOFEN
  16. ELIQUIS [Concomitant]
     Active Substance: APIXABAN
  17. FOLIC ACID [Concomitant]
     Active Substance: FOLIC ACID
  18. NOVOLOG [Concomitant]
     Active Substance: INSULIN ASPART

REACTIONS (1)
  - Malaise [Unknown]

NARRATIVE: CASE EVENT DATE: 20250806
